FAERS Safety Report 23341751 (Version 1)
Quarter: 2023Q4

REPORT INFORMATION
  Report Type: Report from Study
  Country: CA (occurrence: CA)
  Receive Date: 20231227
  Receipt Date: 20231227
  Transmission Date: 20240110
  Serious: Yes (Other)
  Sender: FDA-Public Use
  Company Number: CA-TAKEDA-2023TUS122741

PATIENT
  Sex: Male

DRUGS (4)
  1. VEDOLIZUMAB [Suspect]
     Active Substance: VEDOLIZUMAB
     Indication: Crohn^s disease
     Dosage: 300 MILLIGRAM
     Route: 042
     Dates: start: 20231010
  2. VITAMIN B12 [Concomitant]
     Active Substance: CYANOCOBALAMIN
     Dosage: UNK UNK, MONTHLY
  3. IRON [Concomitant]
     Active Substance: IRON
     Dosage: UNK, QD
  4. VIOLAX [Concomitant]
     Dosage: UNK UNK, BID

REACTIONS (2)
  - Colon cancer metastatic [Recovering/Resolving]
  - B-cell lymphoma [Recovering/Resolving]
